FAERS Safety Report 14705334 (Version 1)
Quarter: 2018Q2

REPORT INFORMATION
  Report Type: Spontaneous
  Country: US (occurrence: US)
  Receive Date: 20180402
  Receipt Date: 20180402
  Transmission Date: 20180711
  Serious: Yes (Death)
  Sender: FDA-Public Use
  Company Number: US-PFIZER INC-2018132740

PATIENT
  Age: 72 Year
  Sex: Female
  Weight: 52.62 kg

DRUGS (2)
  1. SILDENAFIL CITRATE. [Suspect]
     Active Substance: SILDENAFIL CITRATE
     Indication: PULMONARY HYPERTENSION
     Dosage: 80 MG, 3X/DAY
     Route: 048
  2. NORVASC [Concomitant]
     Active Substance: AMLODIPINE BESYLATE
     Indication: CARDIAC FAILURE
     Dosage: 5 MG, 1X/DAY

REACTIONS (4)
  - Pulmonary hypertension [Fatal]
  - Condition aggravated [Fatal]
  - Hypoxia [Fatal]
  - Product use issue [Unknown]
